FAERS Safety Report 9705868 (Version 2)
Quarter: 2013Q4

REPORT INFORMATION
  Report Type: Report from Study
  Country: US (occurrence: US)
  Receive Date: 20131122
  Receipt Date: 20131122
  Transmission Date: 20140711
  Serious: Yes (Other)
  Sender: FDA-Public Use
  Company Number: US-ABBVIE-13P-163-1138606-00

PATIENT
  Sex: Female
  Weight: 67.19 kg

DRUGS (9)
  1. HUMIRA [Suspect]
     Indication: PSORIASIS
  2. HUMIRA [Suspect]
     Indication: RHEUMATOID ARTHRITIS
  3. BYSTOLIC [Concomitant]
     Indication: PRODUCT USED FOR UNKNOWN INDICATION
  4. RISPERDAL [Concomitant]
     Indication: SCHIZOPHRENIA
  5. TRAZODONE [Concomitant]
     Indication: ANXIOLYTIC THERAPY
  6. FENOFIBRATE [Concomitant]
     Indication: BLOOD CHOLESTEROL
  7. LEVOTHYROXINE [Concomitant]
     Indication: HYPOTHYROIDISM
  8. OMEGA 3 [Concomitant]
     Indication: PRODUCT USED FOR UNKNOWN INDICATION
  9. OXYBUTYNIN [Concomitant]
     Indication: PRODUCT USED FOR UNKNOWN INDICATION

REACTIONS (4)
  - Knee arthroplasty [Not Recovered/Not Resolved]
  - Somnolence [Not Recovered/Not Resolved]
  - Dizziness [Not Recovered/Not Resolved]
  - Hypersomnia [Unknown]
